FAERS Safety Report 6116556-7 (Version None)
Quarter: 2009Q1

REPORT INFORMATION
  Report Type: 
  Country: None (occurrence: None)
  Receive Date: 20090314
  Receipt Date: 20081217
  Transmission Date: 20090719
  Serious: No
  Sender: FDA-Public Use
  Company Number: US-ABBOTT-08P-163-0493508-00

PATIENT
  Sex: Female
  Weight: 55.388 kg

DRUGS (4)
  1. HUMIRA [Suspect]
     Indication: ANKYLOSING SPONDYLITIS
     Route: 058
     Dates: start: 20070101
  2. CELEBREX [Concomitant]
     Indication: ANKYLOSING SPONDYLITIS
  3. ZOLOFT [Concomitant]
     Indication: ANXIETY
  4. AMBIEN [Concomitant]
     Indication: SLEEP DISORDER THERAPY

REACTIONS (4)
  - INJECTION SITE ERYTHEMA [None]
  - INJECTION SITE RASH [None]
  - INJECTION SITE WARMTH [None]
  - OEDEMA PERIPHERAL [None]
